FAERS Safety Report 8180983-7 (Version None)
Quarter: 2012Q1

REPORT INFORMATION
  Report Type: 
  Country: None (occurrence: None)
  Receive Date: 20120302
  Receipt Date: 20120227
  Transmission Date: 20120608
  Serious: Yes (Hospitalization, Other)
  Sender: FDA-Public Use
  Company Number: US-BAYER-201041960NA

PATIENT
  Age: 40 Year
  Sex: Female
  Weight: 58.503 kg

DRUGS (7)
  1. ALLEGRA-D 12 HOUR [Concomitant]
  2. YAZ [Suspect]
     Indication: PREMENSTRUAL SYNDROME
     Route: 048
     Dates: start: 20071001, end: 20071201
  3. YAZ [Suspect]
     Indication: MENSTRUAL DISORDER
  4. CIPROFLOXACIN [Concomitant]
     Dosage: 500 MG, UNK
  5. CHERATUSSIN AC [Concomitant]
  6. BIAXIN [Concomitant]
     Dosage: 500 MG, UNK
     Dates: start: 20071205
  7. YASMIN [Suspect]
     Indication: PRODUCT USED FOR UNKNOWN INDICATION
     Route: 048
     Dates: start: 20071001, end: 20071201

REACTIONS (2)
  - DEEP VEIN THROMBOSIS [None]
  - PAIN IN EXTREMITY [None]
